FAERS Safety Report 14306380 (Version 3)
Quarter: 2018Q1

REPORT INFORMATION
  Report Type: Spontaneous
  Country: JP (occurrence: JP)
  Receive Date: 20171220
  Receipt Date: 20180302
  Transmission Date: 20180509
  Serious: Yes (Death, Hospitalization, Other)
  Sender: FDA-Public Use
  Company Number: JP-BRISTOL-MYERS SQUIBB COMPANY-BMS-2017-116478

PATIENT
  Age: 66 Year
  Sex: Male

DRUGS (1)
  1. OPDIVO [Suspect]
     Active Substance: NIVOLUMAB
     Indication: NON-SMALL CELL LUNG CANCER
     Dosage: 160 MG, UNK
     Route: 041
     Dates: start: 20161121, end: 20161212

REACTIONS (5)
  - Acute respiratory failure [Fatal]
  - Interstitial lung disease [Fatal]
  - Prescribed underdose [Unknown]
  - Malignant neoplasm progression [Fatal]
  - Bronchiectasis [Unknown]

NARRATIVE: CASE EVENT DATE: 20161229
